FAERS Safety Report 7719144-1 (Version None)
Quarter: 2011Q3

REPORT INFORMATION
  Report Type: 
  Country: None (occurrence: None)
  Receive Date: 20110830
  Receipt Date: 20110826
  Transmission Date: 20111222
  Serious: Yes (Other)
  Sender: FDA-Public Use
  Company Number: JP-EISAI INC-E2020-09528-SPO-JP

PATIENT
  Age: 85 Year
  Sex: Male

DRUGS (11)
  1. ADOAIR [Concomitant]
     Indication: ASTHMA
     Route: 045
  2. MEMANTINE HYDROCHLORIDE [Concomitant]
     Indication: DEMENTIA
     Route: 048
     Dates: start: 20110701, end: 20110707
  3. LASIX [Concomitant]
     Route: 048
  4. GASMOTIN [Concomitant]
     Route: 048
  5. LOCHOLEST [Concomitant]
     Route: 048
  6. SIGMART [Concomitant]
     Route: 048
  7. ONE-ALPHA [Concomitant]
     Route: 048
  8. ASPIRIN [Concomitant]
     Route: 048
  9. ARICEPT [Suspect]
     Indication: DEMENTIA
     Route: 048
     Dates: end: 20110701
  10. MEMANTINE HYDROCHLORIDE [Concomitant]
     Route: 048
     Dates: start: 20110708, end: 20110715
  11. EPADEL [Concomitant]
     Route: 048

REACTIONS (1)
  - INTERSTITIAL LUNG DISEASE [None]
